FAERS Safety Report 7352030-8 (Version None)
Quarter: 2011Q1

REPORT INFORMATION
  Report Type: 
  Country: None (occurrence: None)
  Receive Date: 20110315
  Receipt Date: 20110308
  Transmission Date: 20110831
  Serious: Yes (Hospitalization)
  Sender: FDA-Public Use
  Company Number: CH-ABBOTT-11P-151-0710155-00

PATIENT
  Sex: Male

DRUGS (3)
  1. HUMIRA [Suspect]
     Indication: RHEUMATOID ARTHRITIS
     Dates: start: 20070101
  2. METHOTREXATE [Concomitant]
     Dates: start: 20070101
  3. METHOTREXATE [Concomitant]
     Indication: RHEUMATOID ARTHRITIS
     Dates: start: 20050101, end: 20060101

REACTIONS (6)
  - CHEST DISCOMFORT [None]
  - LIP SWELLING [None]
  - MUSCLE SPASMS [None]
  - HYPERSENSITIVITY [None]
  - HYPERVENTILATION [None]
  - DRUG EFFECT DECREASED [None]
